FAERS Safety Report 5572020-5 (Version None)
Quarter: 2007Q4

REPORT INFORMATION
  Report Type: 
  Country: None (occurrence: None)
  Receive Date: 20071221
  Receipt Date: 20071212
  Transmission Date: 20080405
  Serious: Yes (Hospitalization)
  Sender: FDA-Public Use
  Company Number: US-PFIZER INC-2007099162

PATIENT
  Sex: Male
  Weight: 139.1 kg

DRUGS (12)
  1. SUTENT [Suspect]
     Indication: METASTATIC RENAL CELL CARCINOMA
     Route: 048
     Dates: start: 20070920, end: 20071121
  2. LOSARTAN POTASSIUM [Concomitant]
     Route: 048
     Dates: start: 20040101
  3. NIACIN [Concomitant]
     Route: 048
     Dates: start: 20060101, end: 20071119
  4. ASPIRIN [Concomitant]
     Route: 048
     Dates: start: 20060101, end: 20071119
  5. INSULIN ASPART [Concomitant]
     Route: 058
     Dates: start: 20050101
  6. INSULIN GLARGINE [Concomitant]
     Route: 058
     Dates: start: 20050101
  7. AVANDIA [Concomitant]
     Route: 048
     Dates: start: 20070301
  8. ZOCOR [Concomitant]
     Route: 048
     Dates: start: 20040101
  9. NORVASC [Concomitant]
     Route: 048
     Dates: start: 20070912
  10. FISH OIL [Concomitant]
     Route: 048
     Dates: start: 20060101
  11. REGLAN [Concomitant]
     Route: 048
     Dates: start: 20071004
  12. HYDROCHLOROTHIAZIDE [Concomitant]
     Route: 048
     Dates: start: 20040101

REACTIONS (1)
  - HAEMATURIA [None]
